FAERS Safety Report 8272396-4 (Version None)
Quarter: 2012Q2

REPORT INFORMATION
  Report Type: 
  Country: None (occurrence: None)
  Receive Date: 20120410
  Receipt Date: 20120403
  Transmission Date: 20120825
  Serious: Yes (Other)
  Sender: FDA-Public Use
  Company Number: CHPA2012US001089

PATIENT
  Age: 18 Year
  Sex: Female

DRUGS (2)
  1. PROPRANOLOL [Concomitant]
     Dosage: UNK
     Dates: start: 20111209
  2. EXCEDRIN (MIGRAINE) [Suspect]
     Indication: MIGRAINE
     Dosage: 1 DF, PRN
     Route: 048
     Dates: start: 20111201

REACTIONS (4)
  - EMOTIONAL DISTRESS [None]
  - DIZZINESS [None]
  - UNDERDOSE [None]
  - VISION BLURRED [None]
